FAERS Safety Report 4796508-X (Version None)
Quarter: 2005Q4

REPORT INFORMATION
  Report Type: 
  Country: None (occurrence: None)
  Receive Date: 20051011
  Receipt Date: 20041112
  Transmission Date: 20060501
  Serious: Yes (Hospitalization)
  Sender: FDA-Public Use
  Company Number: 2004-BP-11838BP

PATIENT
  Age: 84 Year
  Sex: Female

DRUGS (3)
  1. CATAPRES [Suspect]
     Indication: HYPERTENSION
     Dosage: 0.2 MG (5 MG, 1 PATCH Q WEEK), TO
     Route: 061
     Dates: start: 19890101
  2. LASIX [Concomitant]
  3. COUMADIN [Concomitant]

REACTIONS (2)
  - BLOOD PRESSURE SYSTOLIC INCREASED [None]
  - THERAPEUTIC RESPONSE DECREASED [None]
